FAERS Safety Report 12656201 (Version 1)
Quarter: 2016Q3

REPORT INFORMATION
  Report Type: Spontaneous
  Country: US (occurrence: US)
  Receive Date: 20160816
  Receipt Date: 20160816
  Transmission Date: 20161109
  Serious: No
  Sender: FDA-Public Use
  Company Number: US-GALDERMA-US16004288

PATIENT
  Age: 67 Year
  Sex: Male
  Weight: 73 kg

DRUGS (1)
  1. METRONIDAZOLE GEL, 1% [Suspect]
     Active Substance: METRONIDAZOLE
     Indication: ROSACEA
     Dosage: 1%
     Route: 061
     Dates: start: 20160614, end: 20160614

REACTIONS (2)
  - Rash erythematous [Not Recovered/Not Resolved]
  - Skin burning sensation [Not Recovered/Not Resolved]

NARRATIVE: CASE EVENT DATE: 20160614
